FAERS Safety Report 4977154-1 (Version None)
Quarter: 2006Q2

REPORT INFORMATION
  Report Type: 
  Country: None (occurrence: None)
  Receive Date: 20060413
  Receipt Date: 20060315
  Transmission Date: 20061013
  Serious: Yes (Death)
  Sender: FDA-Public Use
  Company Number: ABX14-06-0122

PATIENT
  Age: 66 Year
  Sex: Female
  Weight: 61.2356 kg

DRUGS (8)
  1. ABRAXANE [Suspect]
     Indication: NON-SMALL CELL LUNG CANCER
     Dosage: INTRAVENOUS DRIP
     Route: 041
     Dates: start: 20051122, end: 20060221
  2. PLAVIX [Concomitant]
  3. ZOCOR [Concomitant]
  4. ANZEMET [Concomitant]
  5. DEXAMETHASONE [Concomitant]
  6. MARINOL [Concomitant]
  7. LEXAPRO [Concomitant]
  8. XANAX [Concomitant]

REACTIONS (1)
  - PULMONARY EMBOLISM [None]
